FAERS Safety Report 9039591 (Version 1)
Quarter: 2013Q1

REPORT INFORMATION
  Report Type: Report from Study
  Country: US (occurrence: US)
  Receive Date: 20130129
  Receipt Date: 20130129
  Transmission Date: 20140127
  Serious: No
  Sender: FDA-Public Use
  Company Number: US-ABBOTT-12P-163-0937499-00

PATIENT
  Age: 49 Year
  Sex: Female

DRUGS (7)
  1. HUMIRA 40 MG/0.8 ML PEN [Suspect]
     Indication: PSORIASIS
     Dates: start: 20120427
  2. HYDROXYZINE [Concomitant]
     Indication: ANXIETY
     Dosage: 2 TAB PM AT BED TIME
     Route: 048
  3. HYDROXYZINE [Concomitant]
     Indication: PRURITUS
  4. CITALOPRAM [Concomitant]
     Indication: ILL-DEFINED DISORDER
     Route: 048
  5. CLOBETASOL [Concomitant]
     Indication: PRODUCT USED FOR UNKNOWN INDICATION
     Dosage: APPLY TO AFFECTED AREA AT BED TIME
  6. LUXIQ [Concomitant]
     Indication: PSORIASIS
     Dosage: FOAM QHS
     Route: 061
  7. ALBUTEROL [Concomitant]
     Indication: ASTHMA
     Route: 055

REACTIONS (6)
  - Arthritis [Unknown]
  - Drug ineffective [Not Recovered/Not Resolved]
  - Hyperhidrosis [Not Recovered/Not Resolved]
  - Blood pressure increased [Unknown]
  - Gait disturbance [Unknown]
  - Dysstasia [Unknown]
